FAERS Safety Report 4663450-4 (Version None)
Quarter: 2005Q2

REPORT INFORMATION
  Report Type: 
  Country: None (occurrence: None)
  Receive Date: 20050511
  Receipt Date: 20050117
  Transmission Date: 20051028
  Serious: Yes (Hospitalization)
  Sender: FDA-Public Use
  Company Number: 392906

PATIENT
  Age: 54 Year
  Sex: Female
  Weight: 99.8 kg

DRUGS (6)
  1. PEGASYS [Suspect]
     Indication: HEPATITIS C
     Dosage: 180 MCG 1 PER 1 WEEK SUBCUTANEOUS
     Route: 058
     Dates: start: 20041108, end: 20050111
  2. COPEGUS [Suspect]
     Indication: HEPATITIS C VIRUS
     Dosage: 6 DOSE FORM DAILY ORAL
     Route: 048
     Dates: start: 20041116, end: 20050115
  3. CELEBREX [Concomitant]
  4. PREMARIN [Concomitant]
  5. HYDROCODONE BITARTRATE [Concomitant]
  6. HYDROCHLOROTHIAZIDE [Concomitant]

REACTIONS (7)
  - ASTHENIA [None]
  - CHEST PAIN [None]
  - DIARRHOEA [None]
  - LEUKOPENIA [None]
  - NEUTROPENIA [None]
  - PYREXIA [None]
  - RED BLOOD CELL COUNT DECREASED [None]
